FAERS Safety Report 17995374 (Version 1)
Quarter: 2020Q3

REPORT INFORMATION
  Report Type: Spontaneous
  Country: US (occurrence: US)
  Receive Date: 20200708
  Receipt Date: 20200708
  Transmission Date: 20201103
  Serious: Yes (Other)
  Sender: FDA-Public Use
  Company Number: None

PATIENT
  Age: 49 Year
  Sex: Female

DRUGS (4)
  1. LORAZEPAM 1MG TABLETS [Concomitant]
  2. AUSTEDO [Suspect]
     Active Substance: DEUTETRABENAZINE
     Indication: TARDIVE DYSKINESIA
     Route: 048
     Dates: start: 20200623
  3. SYNTHROID 50MCG TABLETS [Concomitant]
  4. FLINSTONES PLUS IRON CHEWABLE TABLET [Concomitant]

REACTIONS (3)
  - Mood swings [None]
  - Near death experience [None]
  - Feeling abnormal [None]

NARRATIVE: CASE EVENT DATE: 20200707
